FAERS Safety Report 6418155-6 (Version None)
Quarter: 2009Q4

REPORT INFORMATION
  Report Type: 
  Country: None (occurrence: None)
  Receive Date: 20091028
  Receipt Date: 20091026
  Transmission Date: 20100525
  Serious: Yes (Other)
  Sender: FDA-Public Use
  Company Number: US-ELI_LILLY_AND_COMPANY-US200909000689

PATIENT
  Sex: Male

DRUGS (8)
  1. BYETTA [Suspect]
     Indication: OBESITY
     Dosage: 10 UG, UNK
  2. METFORMIN HCL [Concomitant]
     Indication: TYPE 2 DIABETES MELLITUS
     Dosage: 1500 MG, 2/D
     Dates: start: 20080101
  3. VYTORIN [Concomitant]
     Indication: LIPIDS INCREASED
     Dates: start: 20080101
  4. RAMIPRIL [Concomitant]
     Indication: HYPERTENSION
     Dosage: 5 MG, EACH EVENING
     Dates: start: 20080101
  5. NIACIN [Concomitant]
     Indication: LIPIDS INCREASED
     Dosage: 1000 MG, UNK
     Dates: start: 20080101
  6. FUROSEMIDE [Concomitant]
     Indication: OEDEMA
     Dosage: 40 MG, UNK
     Dates: start: 20080101
  7. NEXIUM [Concomitant]
     Dosage: 40 MG, UNK
     Dates: start: 20080101
  8. METOPROLOL [Concomitant]
     Dosage: 50 MG, UNK
     Dates: start: 20080101

REACTIONS (2)
  - OFF LABEL USE [None]
  - WOUND INFECTION STAPHYLOCOCCAL [None]
